FAERS Safety Report 13436996 (Version 1)
Quarter: 2017Q2

REPORT INFORMATION
  Report Type: Spontaneous
  Country: US (occurrence: US)
  Receive Date: 20170413
  Receipt Date: 20170413
  Transmission Date: 20170830
  Serious: No
  Sender: FDA-Public Use
  Company Number: US-SA-2017SA039065

PATIENT
  Age: 80 Year
  Sex: Male

DRUGS (4)
  1. ALLEGRA-D [Suspect]
     Active Substance: FEXOFENADINE\PSEUDOEPHEDRINE
     Indication: NASAL CONGESTION
     Dosage: START DATE 10 DAYS AGO
     Route: 065
  2. ALLEGRA-D [Suspect]
     Active Substance: FEXOFENADINE\PSEUDOEPHEDRINE
     Indication: COUGH
     Dosage: START DATE 10 DAYS AGO
     Route: 065
  3. ALLEGRA-D [Suspect]
     Active Substance: FEXOFENADINE\PSEUDOEPHEDRINE
     Indication: VIRAL INFECTION
     Dosage: START DATE 10 DAYS AGO
     Route: 065
  4. ALLEGRA-D [Suspect]
     Active Substance: FEXOFENADINE\PSEUDOEPHEDRINE
     Indication: EPISTAXIS
     Dosage: START DATE 10 DAYS AGO
     Route: 065

REACTIONS (6)
  - Insomnia [Recovering/Resolving]
  - Disorientation [Recovering/Resolving]
  - Pollakiuria [Recovering/Resolving]
  - Nocturia [Recovering/Resolving]
  - Product use in unapproved indication [Unknown]
  - Dizziness [Recovering/Resolving]
